FAERS Safety Report 6843387-2 (Version None)
Quarter: 2010Q3

REPORT INFORMATION
  Report Type: 
  Country: None (occurrence: None)
  Receive Date: 20100709
  Receipt Date: 20100623
  Transmission Date: 20110219
  Serious: Yes (Other)
  Sender: FDA-Public Use
  Company Number: 2010US002513

PATIENT
  Age: 65 Year
  Sex: Male

DRUGS (3)
  1. PROGRAF [Suspect]
     Indication: LUNG TRANSPLANT
  2. DELTISONA (PREDNISONE) [Concomitant]
  3. AZATHIOPRINE [Concomitant]

REACTIONS (3)
  - CYTOMEGALOVIRUS INFECTION [None]
  - HAEMATOCHEZIA [None]
  - WHITE BLOOD CELL COUNT INCREASED [None]
